FAERS Safety Report 6992698-9 (Version None)
Quarter: 2010Q3

REPORT INFORMATION
  Report Type: 
  Country: None (occurrence: None)
  Receive Date: 20100917
  Receipt Date: 20100913
  Transmission Date: 20110219
  Serious: Yes (Hospitalization)
  Sender: FDA-Public Use
  Company Number: JP-MERCK-1008USA02643

PATIENT
  Age: 86 Year
  Sex: Female
  Weight: 45 kg

DRUGS (11)
  1. JANUVIA [Suspect]
     Indication: TYPE 2 DIABETES MELLITUS
     Route: 048
     Dates: start: 20100713, end: 20100807
  2. BLOPRESS [Concomitant]
     Indication: HYPERTENSION
     Route: 048
  3. PARIET [Concomitant]
     Indication: REFLUX OESOPHAGITIS
     Route: 048
     Dates: start: 20100617
  4. FOSAMAX [Concomitant]
     Indication: OSTEOPOROSIS
     Route: 048
     Dates: start: 20100618
  5. AMOBAN [Concomitant]
     Indication: INSOMNIA
     Route: 048
     Dates: start: 20100618
  6. PREDNISOLONE [Concomitant]
     Indication: ORGANISING PNEUMONIA
     Route: 048
     Dates: start: 20100715
  7. BACTRAMIN [Suspect]
     Indication: PROPHYLAXIS
     Route: 048
     Dates: start: 20100621
  8. ISCOTIN [Suspect]
     Indication: PROPHYLAXIS
     Route: 048
     Dates: start: 20100628
  9. DEPAS [Suspect]
     Indication: PSYCHOSOMATIC DISEASE
     Route: 048
     Dates: start: 20100730, end: 20100805
  10. LOBU [Suspect]
     Indication: JOINT SPRAIN
     Route: 048
     Dates: start: 20100803, end: 20100805
  11. REBAMIPIDE [Suspect]
     Indication: GASTRITIS
     Route: 048
     Dates: start: 20100803

REACTIONS (1)
  - AGRANULOCYTOSIS [None]
